FAERS Safety Report 7262304-7 (Version None)
Quarter: 2011Q1

REPORT INFORMATION
  Report Type: 
  Country: None (occurrence: None)
  Receive Date: 20110130
  Receipt Date: 20101112
  Transmission Date: 20110831
  Serious: No
  Sender: FDA-Public Use
  Company Number: US-ABBOTT-10P-163-0685770-00

PATIENT
  Sex: Female
  Weight: 67.192 kg

DRUGS (4)
  1. METHOTREXATE [Concomitant]
     Indication: RHEUMATOID ARTHRITIS
  2. HUMIRA [Suspect]
     Indication: RHEUMATOID ARTHRITIS
     Dates: start: 20100101, end: 20101101
  3. EUTIROX [Concomitant]
     Indication: THYROID DISORDER
  4. BONIVA [Concomitant]
     Indication: OSTEOPOROSIS

REACTIONS (2)
  - PRURITUS [None]
  - RASH [None]
